FAERS Safety Report 5368977-8 (Version None)
Quarter: 2007Q2

REPORT INFORMATION
  Report Type: 
  Country: None (occurrence: None)
  Receive Date: 20070625
  Receipt Date: 20070221
  Transmission Date: 20071010
  Serious: No
  Sender: FDA-Public Use
  Company Number: US-ASTRAZENECA-2006UW26934

PATIENT
  Age: 81 Year
  Sex: Male
  Weight: 74.8 kg

DRUGS (6)
  1. CRESTOR [Suspect]
     Indication: BLOOD CHOLESTEROL INCREASED
     Route: 048
     Dates: start: 20061001
  2. CRESTOR [Suspect]
     Route: 048
  3. TOPROL-XL [Concomitant]
  4. DIOVAN [Concomitant]
  5. NITROGLYCERIN SPRAY [Concomitant]
  6. PROTONIX [Concomitant]

REACTIONS (2)
  - ABDOMINAL PAIN LOWER [None]
  - BLOOD TRIGLYCERIDES INCREASED [None]
